FAERS Safety Report 21285906 (Version 1)
Quarter: 2022Q3

REPORT INFORMATION
  Report Type: Spontaneous
  Country: FR (occurrence: FR)
  Receive Date: 20220902
  Receipt Date: 20220902
  Transmission Date: 20221027
  Serious: Yes (Other)
  Sender: FDA-Public Use
  Company Number: FR-BRISTOL-MYERS SQUIBB COMPANY-2022-096420

PATIENT
  Age: 53 Year
  Sex: Female

DRUGS (4)
  1. NIVOLUMAB [Suspect]
     Active Substance: NIVOLUMAB
     Indication: Metastatic malignant melanoma
     Route: 065
     Dates: start: 201908, end: 201911
  2. NIVOLUMAB [Suspect]
     Active Substance: NIVOLUMAB
     Route: 065
  3. IPILIMUMAB [Suspect]
     Active Substance: IPILIMUMAB
     Indication: Metastatic malignant melanoma
     Route: 065
     Dates: start: 201908, end: 201911
  4. IPILIMUMAB [Suspect]
     Active Substance: IPILIMUMAB
     Route: 065

REACTIONS (5)
  - Hypoacusis [Recovering/Resolving]
  - Tinnitus [Recovering/Resolving]
  - Papilloedema [Recovering/Resolving]
  - Retinal vasculitis [Recovering/Resolving]
  - Immune-mediated uveitis [Recovering/Resolving]

NARRATIVE: CASE EVENT DATE: 20191101
